FAERS Safety Report 7107200-0 (Version None)
Quarter: 2010Q4

REPORT INFORMATION
  Report Type: 
  Country: None (occurrence: None)
  Receive Date: 20101116
  Receipt Date: 20101018
  Transmission Date: 20110411
  Serious: No
  Sender: FDA-Public Use
  Company Number: US-ABBOTT-10P-163-0678948-00

PATIENT
  Sex: Male
  Weight: 93.524 kg

DRUGS (1)
  1. SIMCOR [Suspect]
     Indication: HYPERLIPIDAEMIA
     Dosage: 500/20MG PER DAY
     Dates: start: 20101016

REACTIONS (2)
  - DIZZINESS [None]
  - FATIGUE [None]
